FAERS Safety Report 9647274 (Version 1)
Quarter: 2013Q4

REPORT INFORMATION
  Report Type: Spontaneous
  Country: US (occurrence: US)
  Receive Date: 20131027
  Receipt Date: 20131027
  Transmission Date: 20140711
  Serious: No
  Sender: FDA-Public Use
  Company Number: US-PURDUE-USA-2013-0107263

PATIENT
  Sex: Female

DRUGS (2)
  1. OXYCONTIN (NDA 22-272) [Suspect]
     Indication: PAIN
     Dosage: 360 MG, Q8H
     Route: 048
  2. OXYCODON [Concomitant]
     Indication: BREAKTHROUGH PAIN
     Dosage: 30 MG, Q6H
     Route: 048

REACTIONS (1)
  - Pain [Unknown]
